FAERS Safety Report 16646303 (Version 1)
Quarter: 2019Q3

REPORT INFORMATION
  Report Type: Spontaneous
  Country: US (occurrence: US)
  Receive Date: 20190730
  Receipt Date: 20190730
  Transmission Date: 20191004
  Serious: Yes (Other)
  Sender: FDA-Public Use
  Company Number: US-BAYER-2019-135989

PATIENT
  Age: 40 Year
  Sex: Female

DRUGS (4)
  1. MIRENA [Suspect]
     Active Substance: LEVONORGESTREL
     Indication: PREMATURE MENOPAUSE
     Dosage: 20 MCG/24HR, CONT
     Route: 015
  2. MIRENA [Suspect]
     Active Substance: LEVONORGESTREL
     Indication: MIGRAINE
  3. BETAHIST [Concomitant]
  4. ACARBOSE. [Concomitant]
     Active Substance: ACARBOSE

REACTIONS (4)
  - Blindness transient [None]
  - Device use issue [None]
  - Off label use of device [None]
  - Visual impairment [None]
